FAERS Safety Report 4761454-4 (Version None)
Quarter: 2005Q3

REPORT INFORMATION
  Report Type: 
  Country: None (occurrence: None)
  Receive Date: 20050906
  Receipt Date: 20050804
  Transmission Date: 20060218
  Serious: Yes (Hospitalization, Other)
  Sender: FDA-Public Use
  Company Number: PHEH2005US08697

PATIENT
  Age: 13 Year
  Sex: Male

DRUGS (3)
  1. ELIDEL [Suspect]
     Indication: ECZEMA
     Dosage: UNK, PRN
     Route: 061
     Dates: end: 20050701
  2. ALLEGRA [Concomitant]
     Indication: HYPERSENSITIVITY
     Dosage: 180 MG, QD
     Route: 048
  3. FLONASE [Concomitant]
     Dosage: UNK, QD
     Route: 045

REACTIONS (6)
  - BACTERAEMIA [None]
  - COMPRESSION FRACTURE [None]
  - FALL [None]
  - OSTEOMYELITIS [None]
  - STAPHYLOCOCCAL INFECTION [None]
  - URINARY TRACT INFECTION STAPHYLOCOCCAL [None]
